FAERS Safety Report 6690440-2 (Version None)
Quarter: 2010Q2

REPORT INFORMATION
  Report Type: 
  Country: None (occurrence: None)
  Receive Date: 20100421
  Receipt Date: 20090518
  Transmission Date: 20101027
  Serious: No
  Sender: FDA-Public Use
  Company Number: US-ASTRAZENECA-2009UW12715

PATIENT
  Sex: Male

DRUGS (8)
  1. CASODEX [Suspect]
     Route: 048
     Dates: end: 20090126
  2. AMBIEN [Concomitant]
  3. BENZAPRIL [Concomitant]
  4. TOPROL-XL [Concomitant]
  5. CLONIDINE [Concomitant]
  6. NORVASC [Concomitant]
  7. LOVASTATIN [Concomitant]
  8. ASPIRIN [Concomitant]

REACTIONS (4)
  - FATIGUE [None]
  - HOT FLUSH [None]
  - MOOD SWINGS [None]
  - MYALGIA [None]
